FAERS Safety Report 9729132 (Version 1)
Quarter: 2013Q4

REPORT INFORMATION
  Report Type: Spontaneous
  Country: US (occurrence: US)
  Receive Date: 20131204
  Receipt Date: 20131204
  Transmission Date: 20140711
  Serious: Yes (Hospitalization)
  Sender: FDA-Public Use
  Company Number: US-PFIZER INC-2013341258

PATIENT
  Age: 18 Year
  Sex: Male

DRUGS (6)
  1. CLINDAMYCIN PHOSPHATE [Suspect]
     Indication: STAPHYLOCOCCUS TEST POSITIVE
     Dosage: 3.6 G, DAILY (900 MG INTRAVENOUSLY EVERY 6 HOURS INFUSED OVER 30 MINUTES)
     Route: 042
  2. CLINDAMYCIN PHOSPHATE [Suspect]
     Indication: LUNG INFILTRATION
     Dosage: 600 MG INTRAVENOUSLY OVER 30 MINUTES EVERY 8 HOURS
     Route: 042
  3. CEPHALOTHIN [Concomitant]
     Indication: ENDOCARDITIS STAPHYLOCOCCAL
     Dosage: 24G/DAY
  4. CEPHALOTHIN [Concomitant]
     Indication: LUNG ABSCESS
     Dosage: 30G/DAY
  5. PROBENECID [Concomitant]
     Indication: ENDOCARDITIS STAPHYLOCOCCAL
     Dosage: 2 G/DAY
  6. PROBENECID [Concomitant]
     Indication: LUNG ABSCESS

REACTIONS (1)
  - Hepatotoxicity [Recovered/Resolved]
